FAERS Safety Report 16477398 (Version 1)
Quarter: 2019Q2

REPORT INFORMATION
  Report Type: Report from Study
  Country: US (occurrence: US)
  Receive Date: 20190626
  Receipt Date: 20190626
  Transmission Date: 20190711
  Serious: Yes (Hospitalization)
  Sender: FDA-Public Use
  Company Number: PHEH2019US025964

PATIENT
  Sex: Female

DRUGS (1)
  1. KISQALI [Suspect]
     Active Substance: RIBOCICLIB
     Indication: PRODUCT USED FOR UNKNOWN INDICATION
     Dosage: UNK
     Route: 048

REACTIONS (7)
  - Back pain [Unknown]
  - Red blood cell count decreased [Unknown]
  - Nausea [Unknown]
  - Epistaxis [Unknown]
  - Platelet count decreased [Unknown]
  - Mouth haemorrhage [Unknown]
  - Fatigue [Unknown]
